FAERS Safety Report 20188715 (Version 2)
Quarter: 2021Q4

REPORT INFORMATION
  Report Type: Spontaneous
  Country: US (occurrence: US)
  Receive Date: 20211215
  Receipt Date: 20211215
  Transmission Date: 20220304
  Serious: Yes (Other)
  Sender: FDA-Public Use
  Company Number: US-GILEAD-2021-0560613

PATIENT
  Sex: Male

DRUGS (13)
  1. VEKLURY [Suspect]
     Active Substance: REMDESIVIR
     Indication: COVID-19
     Dosage: UNK
     Route: 065
  2. MELOXICAM [Concomitant]
     Active Substance: MELOXICAM
  3. PROPRANOLOL [Concomitant]
     Active Substance: PROPRANOLOL HYDROCHLORIDE
  4. LOSARTAN [Concomitant]
     Active Substance: LOSARTAN
  5. CARBIDOPA [Concomitant]
     Active Substance: CARBIDOPA
  6. LEVODOPA [Concomitant]
     Active Substance: LEVODOPA
  7. CHLORTHALIDONE [Concomitant]
     Active Substance: CHLORTHALIDONE
  8. DULOXETINE [Concomitant]
     Active Substance: DULOXETINE
  9. CHLORZOXAZONE [Concomitant]
     Active Substance: CHLORZOXAZONE
  10. SILDENAFIL [Concomitant]
     Active Substance: SILDENAFIL
  11. SUPER B COMPLEX WITH C [Concomitant]
  12. VITAMIN D3 [Concomitant]
     Active Substance: CHOLECALCIFEROL
  13. BIOTIN [Concomitant]
     Active Substance: BIOTIN

REACTIONS (1)
  - Heart rate decreased [Unknown]
